FAERS Safety Report 4735453-2 (Version None)
Quarter: 2005Q3

REPORT INFORMATION
  Report Type: 
  Country: None (occurrence: None)
  Receive Date: 20050801
  Receipt Date: 20050801
  Transmission Date: 20060218
  Serious: No
  Sender: FDA-Public Use
  Company Number: None

PATIENT
  Sex: Male
  Weight: 63 kg

DRUGS (11)
  1. CEFEPIME [Suspect]
     Indication: FEBRILE NEUTROPENIA
     Dosage: 2G IV Q8H
     Route: 042
     Dates: start: 20050228, end: 20050309
  2. VINCRISTINE [Concomitant]
  3. FLUCONAZOLE [Concomitant]
  4. ACYCLOVIR [Concomitant]
  5. RISPERIDONE [Concomitant]
  6. DIAZEPAM [Concomitant]
  7. TERAZOSIN [Concomitant]
  8. FOSINOPRIL SODIUM [Concomitant]
  9. ALLOPURINOL [Concomitant]
  10. CARBAMAZEPINE [Concomitant]
  11. BENZTROPINE [Concomitant]

REACTIONS (1)
  - RASH [None]
